FAERS Safety Report 6168688-5 (Version None)
Quarter: 2009Q2

REPORT INFORMATION
  Report Type: 
  Country: None (occurrence: None)
  Receive Date: 20090427
  Receipt Date: 20090415
  Transmission Date: 20091009
  Serious: Yes (Hospitalization)
  Sender: FDA-Public Use
  Company Number: US-PFIZER INC-2009198759

PATIENT
  Sex: Male
  Weight: 91 kg

DRUGS (12)
  1. SUNITINIB MALATE [Suspect]
     Indication: NEUROENDOCRINE TUMOUR
     Dosage: 37.5 MG, 1X/DAY, DAILY X 2WEEKS
     Route: 048
     Dates: start: 20061114, end: 20090403
  2. OMEPRAZOLE [Concomitant]
     Dosage: UNK
  3. INDERAL [Concomitant]
     Dosage: UNK
  4. BENAZEPRIL [Concomitant]
     Dosage: UNK
  5. ZYRTEC [Concomitant]
     Dosage: UNK
  6. SYNTHROID [Concomitant]
     Dosage: UNK
  7. REGLAN [Concomitant]
     Dosage: UNK
  8. PROTONIX [Concomitant]
     Dosage: UNK
  9. SODIUM CHLORIDE [Concomitant]
     Dosage: 150 AN HOUR
  10. DILAUDID [Concomitant]
     Dosage: UNK
  11. ZOFRAN [Concomitant]
     Dosage: UNK
  12. PROMETHAZINE [Concomitant]
     Dosage: UNK

REACTIONS (1)
  - RENAL FAILURE ACUTE [None]
